FAERS Safety Report 18630592 (Version 1)
Quarter: 2020Q4

REPORT INFORMATION
  Report Type: Spontaneous
  Country: JP (occurrence: JP)
  Receive Date: 20201218
  Receipt Date: 20201218
  Transmission Date: 20210114
  Serious: Yes (Other)
  Sender: FDA-Public Use
  Company Number: JP-AMGEN-JPNCT2020204955

PATIENT

DRUGS (3)
  1. GRAN [Suspect]
     Active Substance: FILGRASTIM
     Indication: COLONY STIMULATING FACTOR THERAPY
     Dosage: 75 UG, UNK, DAY18, DAY31
     Route: 058
  2. CISPLATIN. [Concomitant]
     Active Substance: CISPLATIN
     Indication: OESOPHAGEAL ADENOSQUAMOUS CARCINOMA
     Dosage: 40 MG/M2, DAY1, DAY8, TWICE EVERY 5 WEEKS
     Route: 041
  3. 5-FU [FLUOROURACIL] [Concomitant]
     Active Substance: FLUOROURACIL
     Indication: OESOPHAGEAL ADENOSQUAMOUS CARCINOMA
     Dosage: 400 MG/M2, DAY1-5, DAY8-12, TWICE EVERY 5 WEEKS
     Route: 041

REACTIONS (8)
  - Thrombocytopenia [Unknown]
  - Oesophagitis [Unknown]
  - Vomiting [Unknown]
  - Leukopenia [Unknown]
  - Anaemia [Unknown]
  - Mucosal inflammation [Unknown]
  - Nausea [Unknown]
  - Nephropathy toxic [Unknown]
